FAERS Safety Report 24700364 (Version 1)
Quarter: 2024Q4

REPORT INFORMATION
  Report Type: Spontaneous
  Country: US (occurrence: US)
  Receive Date: 20241205
  Receipt Date: 20241205
  Transmission Date: 20250115
  Serious: Yes (Death)
  Sender: PROCTER AND GAMBLE
  Company Number: US-PROCTER+GAMBLE-PH24009075

PATIENT
  Age: 30 Year
  Sex: Female

DRUGS (12)
  1. DEXTROMETHORPHAN [Suspect]
     Active Substance: DEXTROMETHORPHAN
     Dosage: UNK
  2. DOXYLAMINE SUCCINATE [Suspect]
     Active Substance: DOXYLAMINE SUCCINATE
     Dosage: UNK
  3. FENTANYL [Suspect]
     Active Substance: FENTANYL
     Dosage: FENTANYL AND CORRESPONDING METABOLITES
  4. METHAMPHETAMINE [Suspect]
     Active Substance: METHAMPHETAMINE
     Dosage: METHAMPHETAMINE AND CORRESPONDING METABOLITES
  5. NALOXONE [Suspect]
     Active Substance: NALOXONE
     Dosage: UNK
  6. TRAMADOL [Suspect]
     Active Substance: TRAMADOL
     Dosage: UNK
  7. NORKETAMINE [Suspect]
     Active Substance: NORKETAMINE
     Dosage: UNK
  8. LEVOMETHORPHAN [Suspect]
     Active Substance: LEVOMETHORPHAN
  9. DEPROPIONYLFENTANYL [Suspect]
     Active Substance: DEPROPIONYLFENTANYL
     Dosage: UNK
  10. N-METHYLNORFENTANYL [Suspect]
     Active Substance: N-METHYLNORFENTANYL
     Dosage: UNK
  11. .BETA.-HYDROXYFENTANYL [Suspect]
     Active Substance: .BETA.-HYDROXYFENTANYL
     Dosage: UNK
  12. N-PHENETHYL-4-PIPERIDINONE [Suspect]
     Active Substance: N-PHENETHYL-4-PIPERIDINONE

REACTIONS (2)
  - Toxicity to various agents [Fatal]
  - Accidental overdose [Fatal]
